FAERS Safety Report 23528845 (Version 1)
Quarter: 2024Q1

REPORT INFORMATION
  Report Type: Spontaneous
  Country: US (occurrence: US)
  Receive Date: 20240215
  Receipt Date: 20240215
  Transmission Date: 20240409
  Serious: Yes (Other)
  Sender: FDA-Public Use
  Company Number: US-BRISTOL-MYERS SQUIBB COMPANY-2024-024596

PATIENT
  Age: 88 Year
  Sex: Female

DRUGS (1)
  1. REVLIMID [Suspect]
     Active Substance: LENALIDOMIDE
     Indication: Diffuse large B-cell lymphoma
     Dosage: DAILY X 7 DAYS ON AND 7 DAYS OFF EVERY 28 DAYS
     Route: 048
     Dates: start: 20230211

REACTIONS (2)
  - Sjogren^s syndrome [Not Recovered/Not Resolved]
  - Off label use [Unknown]
